FAERS Safety Report 9837855 (Version 1)
Quarter: 2013Q4

REPORT INFORMATION
  Report Type: Spontaneous
  Country: US (occurrence: None)
  Receive Date: 20131205
  Receipt Date: 20131205
  Transmission Date: 20140711
  Serious: Yes (Other)
  Sender: FDA-Public Use
  Company Number: 163-POMAL-13103732

PATIENT
  Age: 60 Year
  Sex: Female
  Weight: 70.31 kg

DRUGS (8)
  1. POMALYST [Suspect]
     Indication: PLASMA CELL MYELOMA
     Dosage: 4MG, 4 IN 1 D, PO
     Route: 048
     Dates: start: 20130524
  2. EVISTA (RALOXIFENE HYDROCHLORIDE) [Concomitant]
  3. VITAMIN D (ERGOCALCIFEROL) [Concomitant]
  4. TRIAM/HCTZ [Concomitant]
  5. MULTIVITAMINS (MULTIVITAMINS) [Concomitant]
  6. BACTRIM (BACTRIM) [Concomitant]
  7. AMBIEN (ZOLPIDEM TARTRATE) [Concomitant]
  8. ACYCLOVIR (ACICLOVIR) [Concomitant]

REACTIONS (1)
  - Paraesthesia [None]
